FAERS Safety Report 11440667 (Version 1)
Quarter: 2015Q3

REPORT INFORMATION
  Report Type: Spontaneous
  Country: US (occurrence: US)
  Receive Date: 20150821
  Receipt Date: 20150821
  Transmission Date: 20151125
  Serious: No
  Sender: FDA-Public Use
  Company Number: US-ELI_LILLY_AND_COMPANY-US200708000848

PATIENT
  Age: 61 Year
  Sex: Female

DRUGS (1)
  1. CYMBALTA [Suspect]
     Active Substance: DULOXETINE HYDROCHLORIDE
     Dosage: 30 MG, UNK
     Route: 048
     Dates: start: 200701, end: 20070801

REACTIONS (7)
  - Arthralgia [Unknown]
  - Rash [Unknown]
  - Chills [Unknown]
  - Gait disturbance [Unknown]
  - Hyperhidrosis [Unknown]
  - Anorgasmia [Unknown]
  - Enthesopathy [Unknown]

NARRATIVE: CASE EVENT DATE: 2007
